FAERS Safety Report 9456817 (Version 2)
Quarter: 2014Q1

REPORT INFORMATION
  Report Type: Spontaneous
  Country: US (occurrence: US)
  Receive Date: 20130813
  Receipt Date: 20140128
  Transmission Date: 20141002
  Serious: Yes (Hospitalization)
  Sender: FDA-Public Use
  Company Number: US-B.I. PHARMACEUTICALS,INC./RIDGEFIELD-2013-BI-24031BP

PATIENT
  Age: 65 Year
  Sex: Male
  Weight: 108.86 kg

DRUGS (16)
  1. PRADAXA [Suspect]
     Indication: ATRIAL FIBRILLATION
     Dosage: 300 MG
     Route: 048
     Dates: start: 20110610, end: 20110818
  2. LISINOPRIL [Concomitant]
     Dosage: 40 MG
     Route: 048
  3. ASPIRIN [Concomitant]
     Dosage: 81 MG
     Route: 048
  4. CELEBREX [Concomitant]
     Dosage: 200 MG
     Route: 048
  5. TERAZOSIN [Concomitant]
     Dosage: 2.2 MG
     Route: 048
  6. JANUVIA [Concomitant]
     Dosage: 100 MG
     Route: 048
  7. AMIODARONE [Concomitant]
     Dosage: 200 MG
     Route: 048
  8. METFORMIN [Concomitant]
     Dosage: 2000 MG
     Route: 048
  9. FUROSEMIDE [Concomitant]
     Dosage: 20 MG
     Route: 048
  10. TEMAZEPAM [Concomitant]
     Dosage: 30 MG
     Route: 048
  11. HYDROCODONE [Concomitant]
  12. AMLODIPINE [Concomitant]
     Dosage: 5 MG
     Route: 048
  13. TESTOSTERONE TABLETS [Concomitant]
  14. GLIMEPIRIDE [Concomitant]
     Dosage: 2 MG
     Route: 048
  15. LEVOTHYROXINE [Concomitant]
     Dosage: 50 MCG
     Route: 048
  16. HYDROCHLOROTHIAZIDE [Concomitant]
     Dosage: 12.5 MG
     Route: 048

REACTIONS (3)
  - Subdural haematoma [Unknown]
  - Coagulopathy [Unknown]
  - Haemorrhage [Unknown]
